FAERS Safety Report 12591451 (Version 1)
Quarter: 2016Q3

REPORT INFORMATION
  Report Type: Spontaneous
  Country: VE (occurrence: VE)
  Receive Date: 20160726
  Receipt Date: 20160726
  Transmission Date: 20161109
  Serious: Yes (Other)
  Sender: FDA-Public Use
  Company Number: VE-UCBSA-2016025995

PATIENT
  Age: 55 Year
  Sex: Male
  Weight: 85 kg

DRUGS (3)
  1. PHENOBARBITAL. [Concomitant]
     Active Substance: PHENOBARBITAL
     Indication: PRODUCT USED FOR UNKNOWN INDICATION
     Dosage: 150 MG
  2. KEPPRA [Suspect]
     Active Substance: LEVETIRACETAM
     Indication: SEIZURE
     Dosage: 500 MG IN MORNING AND 1000 MG IN THE NIGHT, 2X/DAY (BID)
     Dates: start: 2009, end: 2009
  3. KEPPRA [Suspect]
     Active Substance: LEVETIRACETAM
     Dosage: 1000 MG 2X/DAY (BID)
     Dates: start: 2009

REACTIONS (6)
  - Therapy cessation [Unknown]
  - Limb injury [Not Recovered/Not Resolved]
  - Seizure [Unknown]
  - Immobile [Unknown]
  - Drug ineffective [Unknown]
  - Hypoaesthesia [Unknown]
